FAERS Safety Report 23084223 (Version 1)
Quarter: 2023Q4

REPORT INFORMATION
  Report Type: Spontaneous
  Country: US (occurrence: US)
  Receive Date: 20231019
  Receipt Date: 20231019
  Transmission Date: 20240109
  Serious: Yes (Other)
  Sender: FDA-Public Use
  Company Number: US-FreseniusKabi-FK202316669

PATIENT
  Age: 68 Year
  Sex: Male

DRUGS (3)
  1. BLEOMYCIN [Suspect]
     Active Substance: BLEOMYCIN SULFATE
     Indication: Extragonadal primary seminoma (pure)
  2. ETOPOSIDE [Concomitant]
     Active Substance: ETOPOSIDE
     Indication: Extragonadal primary seminoma (pure)
  3. CARBOPLATIN [Concomitant]
     Active Substance: CARBOPLATIN
     Indication: Extragonadal primary seminoma (pure)

REACTIONS (2)
  - Pulmonary fibrosis [Unknown]
  - Toxicity to various agents [Recovering/Resolving]
